FAERS Safety Report 10296630 (Version 1)
Quarter: 2014Q3

REPORT INFORMATION
  Report Type: Spontaneous
  Country: US (occurrence: None)
  Receive Date: 20140708
  Receipt Date: 20140708
  Transmission Date: 20150326
  Serious: No
  Sender: FDA-Public Use
  Company Number: None

PATIENT
  Age: 46 Year
  Sex: Female
  Weight: 86.18 kg

DRUGS (1)
  1. LETROZOLE 2.5 MG [Suspect]
     Active Substance: LETROZOLE
     Indication: OESTROGEN RECEPTOR POSITIVE BREAST CANCER
     Dosage: 1 PILL, ONCE DAILY, TAKEN BY MOUTH
     Route: 048
     Dates: start: 20140706, end: 20140707

REACTIONS (8)
  - Headache [None]
  - Rash [None]
  - Peripheral swelling [None]
  - Vision blurred [None]
  - Bone pain [None]
  - Pain [None]
  - Dizziness [None]
  - Palpitations [None]

NARRATIVE: CASE EVENT DATE: 20140707
